FAERS Safety Report 12456091 (Version 1)
Quarter: 2016Q2

REPORT INFORMATION
  Report Type: Report from Study
  Country: FR (occurrence: FR)
  Receive Date: 20160610
  Receipt Date: 20160610
  Transmission Date: 20160815
  Serious: Yes (Other)
  Sender: FDA-Public Use
  Company Number: FR-PFIZER INC-2016292986

PATIENT
  Age: 61 Year
  Sex: Female

DRUGS (1)
  1. ESTRACYT [Suspect]
     Active Substance: ESTRAMUSTINE PHOSPHATE SODIUM
     Indication: BREAST CANCER METASTATIC
     Dosage: 2 DF OF 140 MG, 2X/DAY
     Route: 048
     Dates: start: 20121127, end: 20130701

REACTIONS (4)
  - Pelvic pain [Recovered/Resolved]
  - Pelvic haemorrhage [Recovered/Resolved]
  - Product use issue [Recovered/Resolved]
  - Gastrointestinal disorder [Recovered/Resolved]

NARRATIVE: CASE EVENT DATE: 20121127
